FAERS Safety Report 25433214 (Version 1)
Quarter: 2025Q2

REPORT INFORMATION
  Report Type: Other
  Country: GB (occurrence: GB)
  Receive Date: 20250613
  Receipt Date: 20250613
  Transmission Date: 20250717
  Serious: Yes (Other)
  Sender: MACLEODS
  Company Number: GB-MHRA-TPP2949524C5202438YC1748883044033

PATIENT

DRUGS (8)
  1. MEMANTINE [Suspect]
     Active Substance: MEMANTINE
     Indication: Ill-defined disorder
     Route: 065
     Dates: start: 20250311
  2. BISOPROLOL [Concomitant]
     Active Substance: BISOPROLOL
     Indication: Ill-defined disorder
     Dosage: ONE TO BE TAKEN EACH DAY
     Route: 065
     Dates: start: 20250311
  3. FOLIC ACID [Concomitant]
     Active Substance: FOLIC ACID
     Indication: Ill-defined disorder
     Dosage: ONE TO BE TAKEN EACH DAY
     Route: 065
     Dates: start: 20250311
  4. SERTRALINE [Concomitant]
     Active Substance: SERTRALINE HYDROCHLORIDE
     Indication: Ill-defined disorder
     Dosage: ONE TO BE TAKEN EACH DAY
     Route: 065
     Dates: start: 20250311
  5. MICONAZOLE [Concomitant]
     Active Substance: MICONAZOLE
     Indication: Ill-defined disorder
     Route: 065
     Dates: start: 20250423, end: 20250430
  6. ATORVASTATIN [Concomitant]
     Active Substance: ATORVASTATIN
     Indication: Ill-defined disorder
     Dosage: TAKE ONE AT NIGHT
     Route: 065
     Dates: start: 20250311
  7. CLOPIDOGREL [Concomitant]
     Active Substance: CLOPIDOGREL BISULFATE
     Indication: Ill-defined disorder
     Dosage: ONE TO BE TAKEN EACH DAY
     Route: 065
     Dates: start: 20250311
  8. LANSOPRAZOLE [Concomitant]
     Active Substance: LANSOPRAZOLE
     Indication: Ill-defined disorder
     Dosage: TAKE ONE CAPSULE DAILY
     Route: 065
     Dates: start: 20250319

REACTIONS (4)
  - Disorientation [Unknown]
  - Confusional state [Unknown]
  - Palpitations [Unknown]
  - Sedation [Unknown]

NARRATIVE: CASE EVENT DATE: 20250311
